FAERS Safety Report 17240786 (Version 1)
Quarter: 2019Q4

REPORT INFORMATION
  Report Type: Spontaneous
  Country: US (occurrence: US)
  Receive Date: 20191211
  Receipt Date: 20191211
  Transmission Date: 20200122
  Serious: No
  Sender: FDA-Public Use
  Company Number: None

PATIENT
  Sex: Female

DRUGS (1)
  1. INSTANT EAR DRY EQUATE [Suspect]
     Active Substance: ISOPROPYL ALCOHOL

REACTIONS (2)
  - Eye pain [None]
  - Incorrect route of product administration [None]

NARRATIVE: CASE EVENT DATE: 2019
